FAERS Safety Report 4494019-2 (Version None)
Quarter: 2004Q4

REPORT INFORMATION
  Report Type: 
  Country: None (occurrence: None)
  Receive Date: 20041102
  Receipt Date: 20041014
  Transmission Date: 20050328
  Serious: Yes (Death)
  Sender: FDA-Public Use
  Company Number: 04KOR0231

PATIENT
  Age: 78 Year
  Sex: Female

DRUGS (2)
  1. AGGRASTAT [Suspect]
     Dates: start: 20040715, end: 20040716
  2. ASPIRIN [Concomitant]

REACTIONS (2)
  - MYOCARDIAL INFARCTION [None]
  - RENAL FAILURE ACUTE [None]
